FAERS Safety Report 4384740-9 (Version None)
Quarter: 2004Q2

REPORT INFORMATION
  Report Type: 
  Country: None (occurrence: None)
  Receive Date: 20040625
  Receipt Date: 20040610
  Transmission Date: 20050107
  Serious: Yes (Other)
  Sender: FDA-Public Use
  Company Number: 200412014JP

PATIENT
  Age: 71 Year
  Sex: Male

DRUGS (2)
  1. ALLEGRA [Suspect]
     Route: 048
  2. NIPOLAZIN [Suspect]

REACTIONS (8)
  - ALANINE AMINOTRANSFERASE INCREASED [None]
  - AMMONIA INCREASED [None]
  - ASPARTATE AMINOTRANSFERASE INCREASED [None]
  - BILIRUBIN CONJUGATED INCREASED [None]
  - BLOOD BILIRUBIN INCREASED [None]
  - GENERAL PHYSICAL CONDITION ABNORMAL [None]
  - PROTHROMBIN TIME PROLONGED [None]
  - RENAL DISORDER [None]
